FAERS Safety Report 5064634-6 (Version None)
Quarter: 2006Q3

REPORT INFORMATION
  Report Type: 
  Country: None (occurrence: None)
  Receive Date: 20060728
  Receipt Date: 20060111
  Transmission Date: 20061208
  Serious: Yes (Hospitalization)
  Sender: FDA-Public Use
  Company Number: DE-ROCHE-431691

PATIENT
  Age: 45 Year
  Sex: Female

DRUGS (41)
  1. MYCOPHENOLATE MOFETIL [Suspect]
     Route: 048
     Dates: start: 20050927, end: 20051101
  2. MYCOPHENOLATE MOFETIL [Suspect]
     Route: 048
     Dates: start: 20051102
  3. MYCOPHENOLATE MOFETIL [Suspect]
     Route: 042
     Dates: start: 20050921, end: 20050921
  4. MYCOPHENOLATE MOFETIL [Suspect]
     Route: 042
     Dates: start: 20050922, end: 20050926
  5. ZENAPAX [Suspect]
     Route: 042
     Dates: start: 20050921, end: 20050921
  6. ZENAPAX [Suspect]
     Route: 042
     Dates: start: 20050928, end: 20050928
  7. TACROLIMUS [Suspect]
     Route: 048
     Dates: start: 20050926
  8. METHYLPREDNISOLONE [Suspect]
     Route: 065
     Dates: start: 20050921, end: 20050921
  9. PREDNISOLONE [Suspect]
     Route: 065
     Dates: start: 20050922
  10. URSODEOXYCHOLIC ACID [Concomitant]
     Dosage: INDICATION REPORTED AS PBC. STOPPED ON 20 SEPTEMBER 2005, RE-STARTED ON 22 SEPTEMBER 2005 FOR CORRE+
     Dates: start: 19870615
  11. SPIRONOLACTONE [Concomitant]
     Indication: ASCITES
     Dates: start: 20050215, end: 20050920
  12. FUROSEMIDE [Concomitant]
     Indication: ASCITES
     Dosage: STOPPED ON 20 SEPTEMBER 2005. RE-STARTED ON 22 SEPTEMBER 2005 FOR STIMULATION KIDNEY / PULMONARY ED+
     Dates: start: 20050215, end: 20050926
  13. BISOPROLOL FUMARATE [Concomitant]
     Indication: PORTAL HYPERTENSION
     Dates: start: 20050615, end: 20050920
  14. CEFTRIAXON [Concomitant]
     Indication: INFECTION PROPHYLAXIS
     Dates: start: 20050921, end: 20050921
  15. METRONIDAZOLE [Concomitant]
     Indication: INFECTION PROPHYLAXIS
     Dates: start: 20050921, end: 20050921
  16. APROTININ [Concomitant]
     Indication: HAEMORRHAGE PROPHYLAXIS
     Dates: start: 20050921, end: 20050923
  17. NOREPINEPHRINE BITARTRATE [Concomitant]
     Indication: HYPOTENSION
     Dates: start: 20050921, end: 20050921
  18. HEPARIN [Concomitant]
     Indication: THROMBOSIS PROPHYLAXIS
     Dates: start: 20050921, end: 20050925
  19. INSULIN [Concomitant]
     Indication: HYPERGLYCAEMIA
     Dates: start: 20050921, end: 20050924
  20. PIRITRAMID [Concomitant]
     Dates: start: 20050921, end: 20050926
  21. ACETYLCYSTEINE [Concomitant]
     Dosage: INDICATION REPORTED AS REMOVING MUCUS.
     Dates: start: 20050921, end: 20050927
  22. PANTOPRAZOL [Concomitant]
     Indication: PROPHYLAXIS
     Dosage: STOPPED ON 26 SEPTEMBER 2005, RE-STARTED ON 30 SEPTEMBER 2005.
     Dates: start: 20050921
  23. ALBUMIN (HUMAN) [Concomitant]
     Indication: HYPOALBUMINAEMIA
     Dates: start: 20050922, end: 20050926
  24. METAMIZOL [Concomitant]
     Dosage: STOPPED ON 24 SEPTEMBER 2005, RE-STARTED AND STOPPED ON 27 SEPTEMBER 2005. RE-STARTED AND STOPPED O+
     Dates: start: 20050923, end: 20051013
  25. ACYCLOVIR [Concomitant]
     Indication: ANTIVIRAL PROPHYLAXIS
     Dates: start: 20050922
  26. FRESH FROZEN PLASMA [Concomitant]
     Indication: FLUID REPLACEMENT
     Dates: start: 20050921, end: 20050922
  27. GLYCEROLTRINITRAT [Concomitant]
     Dates: start: 20050923, end: 20050924
  28. LACTULOSE [Concomitant]
     Indication: CONSTIPATION
     Dates: start: 20050923, end: 20050924
  29. AMLODIPINE [Concomitant]
     Indication: HYPERTENSION
     Dates: start: 20050923, end: 20050923
  30. IPRATROPIUM BROMIDE [Concomitant]
     Indication: PROPHYLAXIS
     Dates: start: 20050923, end: 20050925
  31. SALBUTAMOL SULFATE [Concomitant]
     Indication: PROPHYLAXIS
     Dates: start: 20050923, end: 20050926
  32. LORMETAZEPAM [Concomitant]
     Dates: start: 20050924, end: 20050924
  33. CERTOPARIN [Concomitant]
     Indication: THROMBOSIS PROPHYLAXIS
     Dates: start: 20050925, end: 20051017
  34. ETILEFRIN [Concomitant]
     Indication: CIRCULATORY COLLAPSE
     Dates: start: 20050926, end: 20050926
  35. COTRIM DS [Concomitant]
     Dates: start: 20050928, end: 20051121
  36. AMPHOTERICIN B [Concomitant]
     Indication: INFECTION PROPHYLAXIS
     Dosage: INDICATION REPORTED AS CANDIDA INFECTION PROPHYLAXIS.
     Dates: start: 20050930, end: 20051121
  37. PHENOBARBITAL TAB [Concomitant]
     Dates: start: 20050927, end: 20050930
  38. LOPERAMID [Concomitant]
     Indication: DIARRHOEA
     Dates: start: 20051014, end: 20051014
  39. FAKTU [Concomitant]
     Indication: HAEMORRHOIDS
     Dates: start: 20051014, end: 20051014
  40. XIPAMID [Concomitant]
     Dates: start: 20051019
  41. BISOPROLOL FUMARATE [Concomitant]
     Indication: HYPERTENSION
     Dates: start: 20051019

REACTIONS (12)
  - DISEASE RECURRENCE [None]
  - FISTULA [None]
  - HEPATIC ARTERY STENOSIS [None]
  - HEPATIC FAILURE [None]
  - HEPATIC ISCHAEMIA [None]
  - HEPATITIS C [None]
  - HEPATOCELLULAR DAMAGE [None]
  - HEPATOTOXICITY [None]
  - MENTAL STATUS CHANGES [None]
  - PULMONARY OEDEMA [None]
  - RESPIRATORY DISTRESS [None]
  - RESPIRATORY FAILURE [None]
